FAERS Safety Report 4505922-9 (Version None)
Quarter: 2004Q4

REPORT INFORMATION
  Report Type: 
  Country: None (occurrence: None)
  Receive Date: 20041025
  Receipt Date: 20031007
  Transmission Date: 20050328
  Serious: Yes (Hospitalization)
  Sender: FDA-Public Use
  Company Number: US-JNJFOC-20030900207

PATIENT
  Age: 70 Year
  Sex: Female
  Weight: 62.5964 kg

DRUGS (5)
  1. REMICADE [Suspect]
     Indication: RHEUMATOID ARTHRITIS
     Dosage: 300 MG, 1 IN 1 DAY, INTRAVENOUS
     Route: 042
     Dates: start: 20030829
  2. METHOTREXATE [Concomitant]
  3. PREDNISONE [Concomitant]
  4. CELEBREX [Concomitant]
  5. MINOCYCLINE HCL [Concomitant]

REACTIONS (1)
  - ARTHRITIS BACTERIAL [None]
